FAERS Safety Report 16368128 (Version 3)
Quarter: 2019Q2

REPORT INFORMATION
  Report Type: Report from Study
  Country: US (occurrence: US)
  Receive Date: 20190529
  Receipt Date: 20190621
  Transmission Date: 20190711
  Serious: Yes (Hospitalization, Other)
  Sender: FDA-Public Use
  Company Number: US-GILEAD-2019-0396207

PATIENT
  Age: 48 Year
  Sex: Female
  Weight: 90.7 kg

DRUGS (31)
  1. ADCIRCA [Concomitant]
     Active Substance: TADALAFIL
  2. ATORVASTATIN [Concomitant]
     Active Substance: ATORVASTATIN
  3. FUROSEMIDE. [Concomitant]
     Active Substance: FUROSEMIDE
  4. LISINOPRIL. [Concomitant]
     Active Substance: LISINOPRIL
  5. IPRATROPIUM/ALBUTEROL [Concomitant]
     Active Substance: ALBUTEROL\IPRATROPIUM
  6. SENSIPAR [Concomitant]
     Active Substance: CINACALCET HYDROCHLORIDE
  7. WARFARIN [Concomitant]
     Active Substance: WARFARIN
  8. CYMBALTA [Concomitant]
     Active Substance: DULOXETINE HYDROCHLORIDE
  9. METOPROLOL TARTRATE. [Concomitant]
     Active Substance: METOPROLOL TARTRATE
  10. REMODULIN [Suspect]
     Active Substance: TREPROSTINIL
     Indication: PULMONARY ARTERIAL HYPERTENSION
     Dosage: 37 NANOGRAM PER KILOGRAM, Q1MINUTE
     Route: 042
     Dates: start: 20190308
  11. UPTRAVI [Concomitant]
     Active Substance: SELEXIPAG
  12. LORAZEPAM. [Concomitant]
     Active Substance: LORAZEPAM
  13. PANTOPRAZOLE [Concomitant]
     Active Substance: PANTOPRAZOLE
  14. OXYGEN. [Concomitant]
     Active Substance: OXYGEN
  15. ASPIRIN 81 [Concomitant]
     Active Substance: ASPIRIN
  16. ADVAIR HFA [Concomitant]
     Active Substance: FLUTICASONE PROPIONATE\SALMETEROL XINAFOATE
  17. RENVELA [Concomitant]
     Active Substance: SEVELAMER CARBONATE
  18. BREO ELLIPTA [Concomitant]
     Active Substance: FLUTICASONE FUROATE\VILANTEROL TRIFENATATE
  19. AUGMENTIN [Concomitant]
     Active Substance: AMOXICILLIN\CLAVULANATE POTASSIUM
  20. MEDROL [METHYLPREDNISOLONE ACETATE] [Concomitant]
     Active Substance: METHYLPREDNISOLONE ACETATE
  21. AMBRISENTAN [Suspect]
     Active Substance: AMBRISENTAN
     Indication: PULMONARY ARTERIAL HYPERTENSION
     Dosage: 10 MG, QD
     Route: 048
     Dates: start: 20120410
  22. COUMADIN [Concomitant]
     Active Substance: WARFARIN SODIUM
  23. DIALYVITE 800/ ULTRA D [Concomitant]
  24. ISOSORBIDE MONONITE [Concomitant]
  25. VENTOLIN HFA [Concomitant]
     Active Substance: ALBUTEROL SULFATE
  26. SIMVASTATIN. [Concomitant]
     Active Substance: SIMVASTATIN
  27. ZANTAC [Concomitant]
     Active Substance: RANITIDINE HYDROCHLORIDE
  28. DIGOXIN. [Concomitant]
     Active Substance: DIGOXIN
  29. TRAZODONE [Concomitant]
     Active Substance: TRAZODONE HYDROCHLORIDE
  30. SPIRIVA [Concomitant]
     Active Substance: TIOTROPIUM BROMIDE MONOHYDRATE
  31. CELLCEPT [Concomitant]
     Active Substance: MYCOPHENOLATE MOFETIL\MYCOPHENOLATE MOFETIL HYDROCHLORIDE

REACTIONS (9)
  - Headache [Recovered/Resolved]
  - Fluid overload [Unknown]
  - Nausea [Not Recovered/Not Resolved]
  - Vomiting [Not Recovered/Not Resolved]
  - Vomiting [Unknown]
  - Anaemia [Not Recovered/Not Resolved]
  - Nausea [Recovered/Resolved]
  - Dehydration [Unknown]
  - Fluid retention [Recovering/Resolving]

NARRATIVE: CASE EVENT DATE: 20190514
